FAERS Safety Report 9827151 (Version 1)
Quarter: 2014Q1

REPORT INFORMATION
  Report Type: Spontaneous
  Country: US (occurrence: US)
  Receive Date: 20140117
  Receipt Date: 20140117
  Transmission Date: 20141002
  Serious: No
  Sender: FDA-Public Use
  Company Number: US-GLAXOSMITHKLINE-A1040859A

PATIENT
  Age: 24 Year
  Sex: Female
  Weight: 93.6 kg

DRUGS (2)
  1. PROMACTA [Suspect]
     Indication: IMMUNE THROMBOCYTOPENIC PURPURA
     Dosage: 25MG PER DAY
     Route: 048
     Dates: start: 201211, end: 20130906
  2. LEVOTHYROXINE [Concomitant]

REACTIONS (1)
  - Exposure during pregnancy [Unknown]
